FAERS Safety Report 6102634-5 (Version None)
Quarter: 2009Q1

REPORT INFORMATION
  Report Type: 
  Country: None (occurrence: None)
  Receive Date: 20090304
  Receipt Date: 20081027
  Transmission Date: 20090719
  Serious: No
  Sender: FDA-Public Use
  Company Number: A0753673A

PATIENT
  Age: 60 Year
  Sex: Male

DRUGS (2)
  1. REQUIP XL [Suspect]
     Indication: PARKINSON'S DISEASE
     Dosage: 2MG PER DAY
     Route: 048
     Dates: start: 20081019
  2. SINEMET [Suspect]
     Indication: PARKINSON'S DISEASE
     Dosage: 2TAB FOUR TIMES PER DAY
     Route: 048

REACTIONS (1)
  - TREMOR [None]
